FAERS Safety Report 21019604 (Version 1)
Quarter: 2022Q2

REPORT INFORMATION
  Report Type: Spontaneous
  Country: LB (occurrence: LB)
  Receive Date: 20220628
  Receipt Date: 20220628
  Transmission Date: 20220720
  Serious: Yes (Hospitalization, Other)
  Sender: FDA-Public Use
  Company Number: LB-PFIZER INC-202101399288

PATIENT
  Age: 87 Year
  Sex: Female

DRUGS (9)
  1. IBRANCE [Suspect]
     Active Substance: PALBOCICLIB
     Indication: Breast cancer metastatic
     Dosage: 125 MG, CYCLIC (1X/DAY OR 21 DAYS)
     Route: 048
     Dates: start: 202005, end: 202109
  2. IBRANCE [Suspect]
     Active Substance: PALBOCICLIB
     Dosage: 100 MG, 1X/DAY (100MG OD FOR 21 DAYS)
     Route: 048
     Dates: start: 202109, end: 202110
  3. IBRANCE [Suspect]
     Active Substance: PALBOCICLIB
     Dosage: 125 MG, 1X/DAY (125MG OD FOR 21 DAYS)
     Route: 048
     Dates: start: 202110
  4. FEMARA [Concomitant]
     Active Substance: LETROZOLE
     Indication: Breast cancer metastatic
     Dosage: 2.5 MG, 1X/DAY
  5. LASIX [Concomitant]
     Active Substance: FUROSEMIDE
     Dosage: 40 MG, 1X/DAY
  6. EUROFER [FERROUS SULFATE] [Concomitant]
     Dosage: UNK
  7. NEUROBION FORTE [Concomitant]
     Active Substance: CYANOCOBALAMIN\PYRIDOXINE HYDROCHLORIDE\THIAMINE DISULFIDE
     Dosage: UNK
     Route: 042
  8. DORIXINA [CLONIXIN] [Concomitant]
     Dosage: UNK
  9. HEMAX PG [Concomitant]
     Dosage: 10000 MG

REACTIONS (2)
  - Hip fracture [Unknown]
  - Anaemia [Unknown]
